FAERS Safety Report 23342725 (Version 2)
Quarter: 2024Q1

REPORT INFORMATION
  Report Type: Spontaneous
  Country: US (occurrence: US)
  Receive Date: 20231227
  Receipt Date: 20240112
  Transmission Date: 20240410
  Serious: Yes (Hospitalization, Other)
  Sender: FDA-Public Use
  Company Number: US-009507513-2312USA004699

PATIENT
  Age: 54 Year
  Sex: Female
  Weight: 85 kg

DRUGS (4)
  1. BRIDION [Suspect]
     Active Substance: SUGAMMADEX
     Dosage: UNK
     Dates: start: 20231206, end: 20231206
  2. CHANTIX [Concomitant]
     Active Substance: VARENICLINE TARTRATE
  3. CELLCEPT [Concomitant]
     Active Substance: MYCOPHENOLATE MOFETIL
  4. CANNABIS SATIVA SUBSP. INDICA TOP [Concomitant]
     Active Substance: CANNABIS SATIVA SUBSP. INDICA TOP
     Route: 048

REACTIONS (2)
  - Bronchospasm [Recovered/Resolved]
  - Weaning failure [Recovered/Resolved]

NARRATIVE: CASE EVENT DATE: 20231206
